FAERS Safety Report 7368833-X (Version None)
Quarter: 2011Q1

REPORT INFORMATION
  Report Type: 
  Country: None (occurrence: None)
  Receive Date: 20110323
  Receipt Date: 20100923
  Transmission Date: 20110831
  Serious: Yes (Death, Other)
  Sender: FDA-Public Use
  Company Number: US-BAYER-201032317NA

PATIENT
  Sex: Female
  Weight: 104 kg

DRUGS (3)
  1. YASMIN [Suspect]
     Indication: PRODUCT USED FOR UNKNOWN INDICATION
     Route: 048
  2. OCELLA [Suspect]
     Indication: PRODUCT USED FOR UNKNOWN INDICATION
     Route: 048
  3. YAZ [Suspect]
     Indication: MENSTRUATION IRREGULAR
     Dosage: UNK UNK, UNK
     Route: 048
     Dates: start: 20070101, end: 20090101

REACTIONS (13)
  - BENIGN HEPATIC NEOPLASM [None]
  - MYOCARDIAL INFARCTION [None]
  - CEREBRAL THROMBOSIS [None]
  - CHOLECYSTECTOMY [None]
  - CEREBRAL HAEMORRHAGE [None]
  - THROMBOPHLEBITIS [None]
  - HYPERTENSION [None]
  - EMBOLISM ARTERIAL [None]
  - PULMONARY EMBOLISM [None]
  - GALLBLADDER DISORDER [None]
  - HEPATIC ADENOMA [None]
  - DEEP VEIN THROMBOSIS [None]
  - CHOLELITHIASIS [None]
